FAERS Safety Report 25365326 (Version 2)
Quarter: 2025Q2

REPORT INFORMATION
  Report Type: Spontaneous
  Country: US (occurrence: US)
  Receive Date: 20250527
  Receipt Date: 20250529
  Transmission Date: 20250717
  Serious: No
  Sender: SANOFI AVENTIS
  Company Number: US-SA-2024SA192205

PATIENT
  Age: 6 Year
  Sex: Male

DRUGS (2)
  1. DUPIXENT [Suspect]
     Active Substance: DUPILUMAB
     Indication: Eosinophilic oesophagitis
     Dosage: 200 MG, QOW
     Route: 058
  2. MIRALAX [Concomitant]
     Active Substance: POLYETHYLENE GLYCOL 3350
     Dosage: UNK UNK, TID

REACTIONS (5)
  - Abscess [Recovered/Resolved]
  - Injection site mass [Recovered/Resolved]
  - Abdominal pain upper [Not Recovered/Not Resolved]
  - Injection site erythema [Recovered/Resolved]
  - Therapeutic response decreased [Unknown]
